FAERS Safety Report 11053259 (Version 3)
Quarter: 2021Q1

REPORT INFORMATION
  Report Type: Spontaneous
  Country: US (occurrence: US)
  Receive Date: 20150421
  Receipt Date: 20210319
  Transmission Date: 20210419
  Serious: Yes (Other)
  Sender: FDA-Public Use
  Company Number: US-JNJFOC-20140117569

PATIENT
  Sex: Male

DRUGS (5)
  1. RISPERIDONE. [Suspect]
     Active Substance: RISPERIDONE
     Indication: TIC
  2. RISPERIDONE. [Suspect]
     Active Substance: RISPERIDONE
     Indication: TOURETTE^S DISORDER
     Route: 048
     Dates: start: 2004, end: 2008
  3. ORAP [Suspect]
     Active Substance: PIMOZIDE
     Indication: CHRONIC TIC DISORDER
     Route: 048
  4. GUANFACINE. [Suspect]
     Active Substance: GUANFACINE
     Indication: CHRONIC TIC DISORDER
     Route: 048
  5. RISPERIDONE. [Suspect]
     Active Substance: RISPERIDONE
     Indication: ANXIETY
     Route: 048
     Dates: start: 200402, end: 200802

REACTIONS (3)
  - Weight increased [Unknown]
  - Gynaecomastia [Recovered/Resolved]
  - Emotional distress [Unknown]

NARRATIVE: CASE EVENT DATE: 2007
